FAERS Safety Report 4566984-6 (Version None)
Quarter: 2005Q1

REPORT INFORMATION
  Report Type: 
  Country: None (occurrence: None)
  Receive Date: 20050201
  Receipt Date: 20040212
  Transmission Date: 20050727
  Serious: Yes (Other)
  Sender: FDA-Public Use
  Company Number: US-BRISTOL-MYERS SQUIBB COMPANY-12510731

PATIENT
  Age: 18 Year
  Sex: Female

DRUGS (14)
  1. STADOL [Suspect]
     Dosage: DURATION: MORE THAN 3 YEARS
     Route: 045
     Dates: start: 19950511
  2. VERAPAMIL [Concomitant]
  3. AMITRIPTYLINE [Concomitant]
  4. DIAMOX [Concomitant]
  5. ULTRAM [Concomitant]
  6. NEURONTIN [Concomitant]
  7. LORCET-HD [Concomitant]
  8. CARISOPRODOL [Concomitant]
  9. HYDROCODONE + ACETAMINOPHEN [Concomitant]
  10. BUTALBITAL + CAFFEINE + ACETAMINOPHEN [Concomitant]
  11. TRIAMTERENE AND HYDROCHLOROTHIAZIDE [Concomitant]
  12. PONDIMIN [Concomitant]
  13. PROMETHAZINE [Concomitant]
  14. PROPOXYPHENE NAPSYLATE [Concomitant]

REACTIONS (2)
  - DEPENDENCE [None]
  - DRUG WITHDRAWAL SYNDROME [None]
